FAERS Safety Report 13958725 (Version 1)
Quarter: 2017Q3

REPORT INFORMATION
  Report Type: Spontaneous
  Country: FR (occurrence: FR)
  Receive Date: 20170911
  Receipt Date: 20170911
  Transmission Date: 20171128
  Serious: Yes (Other)
  Sender: FDA-Public Use
  Company Number: FR-JNJFOC-20170906638

PATIENT
  Age: 69 Year
  Sex: Female

DRUGS (1)
  1. IMBRUVICA [Suspect]
     Active Substance: IBRUTINIB
     Indication: MANTLE CELL LYMPHOMA
     Route: 048
     Dates: start: 2017, end: 201709

REACTIONS (5)
  - Palpitations [Unknown]
  - Cardiac pacemaker insertion [Unknown]
  - Ventricular extrasystoles [Unknown]
  - Atrial fibrillation [Unknown]
  - Supraventricular extrasystoles [Unknown]
